FAERS Safety Report 4866185-8 (Version None)
Quarter: 2005Q4

REPORT INFORMATION
  Report Type: 
  Country: None (occurrence: None)
  Receive Date: 20051227
  Receipt Date: 20051219
  Transmission Date: 20060501
  Serious: Yes (Death, Other)
  Sender: FDA-Public Use
  Company Number: AR-NOVOPROD-249524

PATIENT
  Age: 17 Year
  Sex: Female

DRUGS (3)
  1. NOVOSEVEN [Suspect]
     Indication: ILL-DEFINED DISORDER
     Dosage: 480 UG, 6 VIALS
     Route: 042
     Dates: start: 20051103, end: 20051202
  2. INFLIXIMAB [Concomitant]
     Indication: ILL-DEFINED DISORDER
     Dates: start: 20051104
  3. METYLPREDNISOLON SOLUBILE [Concomitant]
     Dosage: 1 MG, UNK
     Dates: start: 20051104, end: 20051104

REACTIONS (2)
  - SEPTIC SHOCK [None]
  - SPLENIC INFARCTION [None]
